FAERS Safety Report 21694447 (Version 1)
Quarter: 2022Q4

REPORT INFORMATION
  Report Type: Spontaneous
  Country: US (occurrence: US)
  Receive Date: 20221207
  Receipt Date: 20221207
  Transmission Date: 20230112
  Serious: No
  Sender: FDA-Public Use
  Company Number: US-NOVOPROD-951240

PATIENT
  Age: 63 Year
  Sex: Female

DRUGS (6)
  1. NOVOLIN N [Suspect]
     Active Substance: INSULIN HUMAN
     Indication: Product used for unknown indication
     Dosage: SLIDING SCALE
     Route: 058
     Dates: start: 20220607
  2. FIASP [Concomitant]
     Active Substance: INSULIN ASPART
     Dosage: SLIDING SCALE
     Route: 058
     Dates: start: 20220510, end: 20220517
  3. PREDNISONE [Concomitant]
     Active Substance: PREDNISONE
     Indication: Product used for unknown indication
     Dosage: 80 MG, QD
     Route: 048
     Dates: start: 20220430
  4. ATOVACUONA [Concomitant]
     Indication: Product used for unknown indication
     Dosage: 750 MG, QW
     Route: 048
     Dates: start: 20220524, end: 20220610
  5. VALGANCICLOVIR [Concomitant]
     Active Substance: VALGANCICLOVIR
     Indication: Product used for unknown indication
     Dosage: 900 MG ONCE A DAY
     Route: 048
     Dates: start: 20220524, end: 20220610
  6. TOUJEO [Concomitant]
     Active Substance: INSULIN GLARGINE
     Indication: Product used for unknown indication
     Dosage: UNK
     Route: 058

REACTIONS (1)
  - Rash pruritic [Not Recovered/Not Resolved]

NARRATIVE: CASE EVENT DATE: 20220609
